FAERS Safety Report 8087786-2 (Version None)
Quarter: 2012Q1

REPORT INFORMATION
  Report Type: 
  Country: None (occurrence: None)
  Receive Date: 20120128
  Receipt Date: 20110604
  Transmission Date: 20120608
  Serious: No
  Sender: FDA-Public Use
  Company Number: US-ABBOTT-11P-163-0730560-00

PATIENT
  Age: 41 Year
  Sex: Female

DRUGS (21)
  1. HUMIRA [Suspect]
     Indication: RHEUMATOID ARTHRITIS
     Dates: start: 20110603
  2. VITAMIN D [Concomitant]
     Indication: VITAMIN D DECREASED
  3. LYRICA [Concomitant]
     Indication: FIBROMYALGIA
  4. FEXOFENADINE [Concomitant]
     Indication: HYPERSENSITIVITY
  5. HYDROMORPHONE HCL [Concomitant]
     Indication: PAIN MANAGEMENT
  6. NIZORAL [Concomitant]
     Indication: SKIN DISORDER
  7. LISINOPRIL AND HYDROCHLOROTHIAZIDE [Concomitant]
     Indication: HYPERTENSION
     Dosage: 20/12.5MG DAILY
  8. PRAVASTATIN [Concomitant]
     Indication: BLOOD CHOLESTEROL INCREASED
  9. BACLOFEN [Concomitant]
     Indication: FIBROMYALGIA
  10. MULTI-VITAMIN [Concomitant]
     Indication: PRODUCT USED FOR UNKNOWN INDICATION
     Dosage: DAILY
  11. PREDNISONE TAB [Concomitant]
     Indication: HYPERSENSITIVITY
  12. METHOTREXATE [Concomitant]
     Indication: RHEUMATOID ARTHRITIS
  13. FOLIC ACID [Concomitant]
     Indication: VITAMIN SUPPLEMENTATION
  14. DEPO-PROVERA [Concomitant]
     Indication: CONTRACEPTION
  15. ZEGERID [Concomitant]
     Indication: GASTROOESOPHAGEAL REFLUX DISEASE
     Dosage: 40-1100MG DAILY
  16. VITAMIN D [Concomitant]
  17. HYOSCYAMINE [Concomitant]
     Indication: ABDOMINAL PAIN UPPER
  18. RANITIDINE [Concomitant]
     Indication: GASTROOESOPHAGEAL REFLUX DISEASE
  19. CALCIUM [Concomitant]
     Indication: MINERAL SUPPLEMENTATION
     Dosage: DAILY
  20. TRAMADOL HCL [Concomitant]
     Indication: PAIN MANAGEMENT
  21. DESONIDE [Concomitant]
     Indication: SKIN DISORDER

REACTIONS (5)
  - FATIGUE [None]
  - ABNORMAL DREAMS [None]
  - ASTHENIA [None]
  - FEELING ABNORMAL [None]
  - NAUSEA [None]
